FAERS Safety Report 12460830 (Version 2)
Quarter: 2016Q2

REPORT INFORMATION
  Report Type: Other
  Country: CH (occurrence: CH)
  Receive Date: 20160613
  Receipt Date: 20160620
  Transmission Date: 20160815
  Serious: Yes (Other)
  Sender: FDA-Public Use
  Company Number: CH-PURDUE PHARMA-DEU-2016-0018055

PATIENT
  Age: 74 Year
  Sex: Male

DRUGS (1)
  1. MORPHINE SULFATE. [Suspect]
     Active Substance: MORPHINE SULFATE
     Indication: ANALGESIC THERAPY
     Dosage: UNK UNK, SEE TEXT
     Route: 065

REACTIONS (3)
  - Hallucination, visual [Unknown]
  - Confusional state [Recovered/Resolved]
  - Circadian rhythm sleep disorder [Unknown]
